FAERS Safety Report 7980849-9 (Version None)
Quarter: 2011Q4

REPORT INFORMATION
  Report Type: 
  Country: None (occurrence: None)
  Receive Date: 20111214
  Receipt Date: 20111212
  Transmission Date: 20120403
  Serious: Yes (Death, Hospitalization)
  Sender: FDA-Public Use
  Company Number: FR-ROCHE-785221

PATIENT
  Age: 67 Year
  Sex: Male

DRUGS (12)
  1. MABTHERA [Suspect]
     Indication: LYMPHOMA
     Route: 065
  2. MABTHERA [Suspect]
     Route: 065
  3. CYCLOPHOSPHAMIDE [Suspect]
     Route: 065
  4. FLUDARABINE PHOSPHATE [Suspect]
     Indication: LYMPHOMA
     Route: 065
  5. MABTHERA [Suspect]
     Route: 065
  6. MABTHERA [Suspect]
     Route: 065
  7. MABTHERA [Suspect]
     Route: 065
  8. CYCLOPHOSPHAMIDE [Suspect]
     Indication: LYMPHOMA
     Route: 065
  9. CYCLOPHOSPHAMIDE [Suspect]
     Route: 065
  10. MABTHERA [Suspect]
     Route: 065
  11. FLUDARABINE PHOSPHATE [Suspect]
     Route: 048
  12. CYCLOPHOSPHAMIDE [Suspect]

REACTIONS (6)
  - ACUTE MYELOID LEUKAEMIA [None]
  - INFECTION [None]
  - THROMBOCYTOPENIA [None]
  - NEUTROPENIA [None]
  - ANAEMIA [None]
  - LUNG INFECTION [None]
